FAERS Safety Report 10137338 (Version 2)
Quarter: 2014Q2

REPORT INFORMATION
  Report Type: Spontaneous
  Country: US (occurrence: US)
  Receive Date: 20140429
  Receipt Date: 20140429
  Transmission Date: 20141212
  Serious: Yes (Death, Other)
  Sender: FDA-Public Use
  Company Number: US-PFIZER INC-2011154299

PATIENT
  Age: 6 Week
  Sex: Female

DRUGS (10)
  1. MORPHINE SULFATE [Suspect]
     Indication: DRUG ABUSE
     Dosage: UNK
     Route: 064
  2. MORPHINE SULFATE [Suspect]
     Route: 063
  3. KLONOPIN [Suspect]
     Dosage: UNK
     Route: 063
  4. KLONOPIN [Suspect]
     Dosage: UNK
     Route: 064
  5. HYDROCODONE BITARTRATE [Concomitant]
     Dosage: UNK
     Route: 064
  6. HYDROCODONE BITARTRATE [Concomitant]
     Route: 063
  7. VICOPROFEN [Concomitant]
     Dosage: UNK
     Route: 063
  8. VICOPROFEN [Concomitant]
     Route: 064
  9. FENTANYL [Concomitant]
     Dosage: UNK
     Route: 063
  10. FENTANYL [Concomitant]
     Route: 064

REACTIONS (5)
  - Exposure during breast feeding [Fatal]
  - Accidental overdose [Fatal]
  - Respiratory disorder [Fatal]
  - Lethargy [Fatal]
  - Maternal exposure during pregnancy [Unknown]
